FAERS Safety Report 5323482-X (Version None)
Quarter: 2007Q2

REPORT INFORMATION
  Report Type: 
  Country: None (occurrence: None)
  Receive Date: 20070514
  Receipt Date: 20070507
  Transmission Date: 20071010
  Serious: Yes (Hospitalization)
  Sender: FDA-Public Use
  Company Number: PHEH2007US07049

PATIENT
  Sex: Female

DRUGS (5)
  1. DIOVAN [Suspect]
     Indication: HYPERTENSION
     Dosage: 160MG, ONE DOSE ONLY
     Dates: start: 20070401, end: 20070401
  2. LOVENOX [Concomitant]
     Dosage: UNK, UNK
  3. SYNTHROID [Concomitant]
     Dosage: UNK, UNK
  4. ASPIRIN [Concomitant]
     Dosage: UNK, UNK
  5. LABETALOL HCL [Concomitant]
     Dosage: UNK, UNK

REACTIONS (7)
  - CATHETERISATION CARDIAC [None]
  - CHEST DISCOMFORT [None]
  - DIZZINESS [None]
  - DYSPNOEA [None]
  - MUSCULAR WEAKNESS [None]
  - THIRST [None]
  - THROAT TIGHTNESS [None]
